FAERS Safety Report 5165804-9 (Version None)
Quarter: 2006Q4

REPORT INFORMATION
  Report Type: 
  Country: None (occurrence: None)
  Receive Date: 20061128
  Receipt Date: 20061116
  Transmission Date: 20070319
  Serious: Yes (Hospitalization, Other)
  Sender: FDA-Public Use
  Company Number: 2006BL006418

PATIENT
  Sex: Female

DRUGS (8)
  1. PREDNISOLONE SODIUM PHOSPHATE [Suspect]
     Indication: TEMPORAL ARTERITIS
     Dosage: 40 MILLIGRAMS; ORAL; 20 MILLIGRAMS; ORAL; 10 MILLIGRAMS
     Route: 048
     Dates: end: 20061009
  2. PREDNISOLONE SODIUM PHOSPHATE [Suspect]
     Indication: TEMPORAL ARTERITIS
     Dosage: 40 MILLIGRAMS; ORAL; 20 MILLIGRAMS; ORAL; 10 MILLIGRAMS
     Route: 048
     Dates: start: 20061009, end: 20061024
  3. PREDNISOLONE SODIUM PHOSPHATE [Suspect]
     Indication: TEMPORAL ARTERITIS
     Dosage: 40 MILLIGRAMS; ORAL; 20 MILLIGRAMS; ORAL; 10 MILLIGRAMS
     Route: 048
     Dates: start: 20061024
  4. AZATHIOPRINE [Concomitant]
  5. CALCICHEW D3 [Concomitant]
  6. FOSAMAX [Concomitant]
  7. SIMVASTATIN [Concomitant]
  8. METHOTREXATE [Concomitant]

REACTIONS (8)
  - BACK PAIN [None]
  - DIZZINESS [None]
  - DYSPNOEA [None]
  - HYPOAESTHESIA [None]
  - NAUSEA [None]
  - ORAL PAIN [None]
  - RASH [None]
  - TREMOR [None]
